FAERS Safety Report 9659153 (Version 2)
Quarter: 2013Q4

REPORT INFORMATION
  Report Type: Spontaneous
  Country: HU (occurrence: HU)
  Receive Date: 20131031
  Receipt Date: 20131113
  Transmission Date: 20140711
  Serious: Yes (Hospitalization, Other)
  Sender: FDA-Public Use
  Company Number: HU-009507513-1310HUN012188

PATIENT
  Age: 65 Year
  Sex: Male

DRUGS (8)
  1. MIRTAZAPINE [Suspect]
     Indication: DEPRESSION
     Dosage: 30 MG DAILY
     Route: 048
     Dates: start: 201202, end: 201207
  2. VENLAFAXINE HYDROCHLORIDE [Concomitant]
     Indication: DEPRESSION
     Dosage: 75 MG, QD
     Dates: start: 20120124, end: 20120207
  3. VENLAFAXINE HYDROCHLORIDE [Concomitant]
     Dosage: 150 MG, QD
     Dates: start: 20120207
  4. PIRACETAM [Concomitant]
     Dosage: 2400 MG, QD
  5. ALPRAZOLAM [Concomitant]
     Dosage: 3 MG, QD
  6. SELEGILINE [Concomitant]
     Dosage: 10 MG, QD
  7. LEVOTHYROXINE SODIUM [Concomitant]
     Dosage: 25 MICROGRAM, QD
  8. OXYBUTIN [Concomitant]
     Dosage: 5 MG, QD

REACTIONS (4)
  - Dyspnoea [Recovered/Resolved]
  - Altered state of consciousness [Recovered/Resolved]
  - Hyponatraemia [Recovered/Resolved]
  - Endotracheal intubation [Unknown]
